FAERS Safety Report 6341965-0 (Version None)
Quarter: 2009Q3

REPORT INFORMATION
  Report Type: 
  Country: None (occurrence: None)
  Receive Date: 20090904
  Receipt Date: 20090827
  Transmission Date: 20100115
  Serious: Yes (Congenital Anomaly, Other)
  Sender: FDA-Public Use
  Company Number: KE-B.I. PHARMACEUTICALS,INC./RIDGEFIELD-2009-BP-08500BP

PATIENT
  Age: 31 Year
  Sex: Female
  Weight: 84.5 kg

DRUGS (4)
  1. VIRAMUNE [Suspect]
     Indication: HIV INFECTION
     Dosage: 400 MG
     Route: 048
     Dates: start: 20071023
  2. TRUVADA [Suspect]
     Indication: HIV INFECTION
     Route: 048
     Dates: start: 20071023, end: 20090406
  3. RETROVIR [Suspect]
     Indication: HIV INFECTION
     Dosage: 600 MG
     Route: 048
     Dates: start: 20090406, end: 20090602
  4. EMTRIVA [Suspect]
     Indication: HIV INFECTION
     Dosage: 200 MG
     Route: 048
     Dates: start: 20090406, end: 20090602

REACTIONS (4)
  - ABDOMINAL PAIN LOWER [None]
  - ABORTION SPONTANEOUS [None]
  - BACK PAIN [None]
  - VAGINAL HAEMORRHAGE [None]
